FAERS Safety Report 9440761 (Version 1)
Quarter: 2013Q3

REPORT INFORMATION
  Report Type: Spontaneous
  Country: US (occurrence: US)
  Receive Date: 20130805
  Receipt Date: 20130805
  Transmission Date: 20140515
  Serious: No
  Sender: FDA-Public Use
  Company Number: US-BAYER-2013-092078

PATIENT
  Age: 69 Year
  Sex: Female
  Weight: 59.86 kg

DRUGS (5)
  1. BAYER GENUINE ASPIRIN ORIGINAL STRENGTH [Suspect]
     Dosage: 2 DF, PRN
     Route: 048
     Dates: start: 1940, end: 1950
  2. MIDOL EXTENDED RELIEF CAPLET [Suspect]
     Indication: DEPRESSED MOOD
     Dosage: 2 DF, PRN
     Route: 048
     Dates: start: 1960, end: 1980
  3. CRESTOR [Concomitant]
  4. ESTROGEN [Concomitant]
  5. AMBIEN [Concomitant]

REACTIONS (2)
  - Off label use [None]
  - Off label use [None]
